FAERS Safety Report 24214110 (Version 2)
Quarter: 2024Q3

REPORT INFORMATION
  Report Type: Spontaneous
  Country: US (occurrence: US)
  Receive Date: 20240815
  Receipt Date: 20240820
  Transmission Date: 20241016
  Serious: Yes (Hospitalization, Other)
  Sender: KARYOPHARM THERAPEUTICS
  Company Number: US-KARYOPHARM-2024KPT001406

PATIENT

DRUGS (12)
  1. XPOVIO [Suspect]
     Active Substance: SELINEXOR
     Indication: Plasma cell myeloma
     Dosage: 40 MG, 2X/WEEK
     Route: 048
     Dates: start: 20240729
  2. XPOVIO [Suspect]
     Active Substance: SELINEXOR
     Dosage: 80 MG, 2X/WEEK
     Route: 048
     Dates: start: 2024, end: 202408
  3. ACYCLOVIR [Concomitant]
     Active Substance: ACYCLOVIR
  4. AMIODARONE [Concomitant]
     Active Substance: AMIODARONE
  5. AUGMENTIN [Concomitant]
     Active Substance: AMOXICILLIN\CLAVULANATE POTASSIUM
  6. DEXAMETHASONE [Concomitant]
     Active Substance: DEXAMETHASONE
  7. MEMANTINE [Concomitant]
     Active Substance: MEMANTINE
  8. METOPROLOL SUCCINATE [Concomitant]
     Active Substance: METOPROLOL SUCCINATE
  9. NORCO [Concomitant]
     Active Substance: ACETAMINOPHEN\HYDROCODONE BITARTRATE
  10. ROPINIROLE [Concomitant]
     Active Substance: ROPINIROLE
  11. TRIAMCINOLONE ACETONIDE [Concomitant]
     Active Substance: TRIAMCINOLONE ACETONIDE
  12. ELIQUIS [Concomitant]
     Active Substance: APIXABAN

REACTIONS (14)
  - Hyperhidrosis [Unknown]
  - Cerebral haemorrhage [Unknown]
  - Heart rate decreased [Unknown]
  - Diarrhoea [Unknown]
  - Loss of consciousness [Unknown]
  - Malaise [Not Recovered/Not Resolved]
  - Plasma cell myeloma [Not Recovered/Not Resolved]
  - Full blood count increased [Not Recovered/Not Resolved]
  - Fatigue [Not Recovered/Not Resolved]
  - Decreased appetite [Not Recovered/Not Resolved]
  - Urinary tract infection [Unknown]
  - Nausea [Unknown]
  - Asthenia [Unknown]
  - Drug ineffective [Unknown]

NARRATIVE: CASE EVENT DATE: 20240101
